FAERS Safety Report 13631159 (Version 1)
Quarter: 2017Q2

REPORT INFORMATION
  Report Type: Report from Study
  Country: US (occurrence: US)
  Receive Date: 20170608
  Receipt Date: 20170608
  Transmission Date: 20170830
  Serious: Yes (Hospitalization, Disabling, Other)
  Sender: FDA-Public Use
  Company Number: US-BAYER-2017-101399

PATIENT
  Age: 36 Year
  Sex: Female

DRUGS (2)
  1. CIPROFLOXACIN. [Suspect]
     Active Substance: CIPROFLOXACIN
     Indication: ABDOMINAL DISTENSION
  2. CIPROFLOXACIN. [Suspect]
     Active Substance: CIPROFLOXACIN
     Indication: NAUSEA
     Dosage: UNK
     Dates: start: 20150724

REACTIONS (19)
  - Ear pain [None]
  - Alopecia [None]
  - Hypoaesthesia [None]
  - Head discomfort [None]
  - Hormone level abnormal [None]
  - Nausea [Recovered/Resolved]
  - Visual snow syndrome [None]
  - Gait disturbance [None]
  - Dry skin [None]
  - Neuralgia [None]
  - Insomnia [None]
  - Heart rate abnormal [None]
  - Tinnitus [None]
  - Body temperature fluctuation [None]
  - Dizziness [None]
  - Pain [None]
  - Physical disability [None]
  - Blood pressure fluctuation [None]
  - Syncope [None]

NARRATIVE: CASE EVENT DATE: 2015
